FAERS Safety Report 5318075-4 (Version None)
Quarter: 2007Q1

REPORT INFORMATION
  Report Type: 
  Country: None (occurrence: None)
  Receive Date: 20070201
  Receipt Date: 20060215
  Transmission Date: 20070707
  Serious: Yes (Other)
  Sender: FDA-Public Use
  Company Number: MEDI-0004205

PATIENT
  Age: 48 Year
  Sex: Male
  Weight: 90.538 kg

DRUGS (7)
  1. ETHYOL [Suspect]
     Indication: CHEMOTHERAPY
     Dosage: SUBCUTANEOUS
     Route: 058
     Dates: start: 20051122, end: 20051222
  2. ETHYOL [Suspect]
     Indication: RADIOTHERAPY
     Dosage: SUBCUTANEOUS
     Route: 058
     Dates: start: 20051122, end: 20051222
  3. CISPLATIN [Concomitant]
  4. RADIATION THERAPY [Concomitant]
  5. ATIVAN [Concomitant]
  6. LORA TAB [Concomitant]
  7. DIFLUCAN [Concomitant]

REACTIONS (7)
  - INJECTION SITE REACTION [None]
  - MALAISE [None]
  - NIKOLSKY'S SIGN [None]
  - PHARYNGOLARYNGEAL PAIN [None]
  - PRURITUS [None]
  - RASH [None]
  - SKIN INJURY [None]
